FAERS Safety Report 6520426-X (Version None)
Quarter: 2009Q4

REPORT INFORMATION
  Report Type: 
  Country: None (occurrence: None)
  Receive Date: 20091229
  Receipt Date: 20091216
  Transmission Date: 20100525
  Serious: Yes (Other)
  Sender: FDA-Public Use
  Company Number: PHEH2009US17924

PATIENT
  Sex: Male

DRUGS (8)
  1. EXELON [Suspect]
     Dosage: 9.5 MG, UNK
  2. CARBIDOPA [Suspect]
     Dosage: 25 MG, UNK
  3. LEVODOPA [Suspect]
     Dosage: 250 MG, UNK
  4. AMLODIPINE [Concomitant]
  5. CALCIUM [Concomitant]
  6. LANOXIN [Concomitant]
     Dosage: 25 MG, UNK
  7. AMIODARONE [Concomitant]
     Dosage: 200 MG, UNK
  8. ASPIRIN [Concomitant]

REACTIONS (4)
  - ABASIA [None]
  - DIZZINESS [None]
  - FALL [None]
  - HEADACHE [None]
